FAERS Safety Report 14893523 (Version 2)
Quarter: 2018Q4

REPORT INFORMATION
  Report Type: Report from Study
  Country: DE (occurrence: DE)
  Receive Date: 20180514
  Receipt Date: 20181228
  Transmission Date: 20190204
  Serious: Yes (Other)
  Sender: FDA-Public Use
  Company Number: DE-SHIRE-DE201733205

PATIENT

DRUGS (1)
  1. OBIZUR [Suspect]
     Active Substance: ANTIHEMOPHILIC FACTOR PORCINE, B-DOMAIN TRUNCATED RECOMBINANT
     Indication: FACTOR VIII DEFICIENCY
     Dosage: 50 IU/KG, 1X/2WKS
     Route: 065
     Dates: start: 20171124, end: 20171125

REACTIONS (3)
  - Therapeutic response decreased [Unknown]
  - Underdose [Unknown]
  - Drug clearance increased [Unknown]

NARRATIVE: CASE EVENT DATE: 20171124
